FAERS Safety Report 8373046-9 (Version None)
Quarter: 2012Q2

REPORT INFORMATION
  Report Type: 
  Country: None (occurrence: None)
  Receive Date: 20120521
  Receipt Date: 20120510
  Transmission Date: 20120825
  Serious: Yes (Other)
  Sender: FDA-Public Use
  Company Number: US-MYLANLABS-2012S1007686

PATIENT
  Age: 22 Year
  Sex: Female

DRUGS (1)
  1. AMNESTEEM [Suspect]
     Dates: start: 20110901, end: 20120306

REACTIONS (2)
  - MATERNAL EXPOSURE BEFORE PREGNANCY [None]
  - ABORTION INDUCED [None]
